FAERS Safety Report 14678974 (Version 2)
Quarter: 2018Q1

REPORT INFORMATION
  Report Type: Spontaneous
  Country: TR (occurrence: TR)
  Receive Date: 20180326
  Receipt Date: 20180326
  Transmission Date: 20180509
  Serious: Yes (Death)
  Sender: FDA-Public Use
  Company Number: PHHY2018TR050384

PATIENT
  Age: 45 Year
  Sex: Male

DRUGS (7)
  1. CICLOSPORIN [Suspect]
     Active Substance: CYCLOSPORINE
     Indication: JUVENILE IDIOPATHIC ARTHRITIS
     Dosage: 2.1 G, UNK
     Route: 048
  2. INFLIXIMAB [Suspect]
     Active Substance: INFLIXIMAB
     Indication: JUVENILE IDIOPATHIC ARTHRITIS
     Dosage: 5 MG/KG, TWICE AT A 2-WEEK INTERVAL
     Route: 065
     Dates: start: 201402
  3. METHYLPREDNISOLONE. [Suspect]
     Active Substance: METHYLPREDNISOLONE
     Indication: JUVENILE IDIOPATHIC ARTHRITIS
     Dosage: 1.40 MG, UNK
     Route: 048
  4. OSELTAMIVIR [Suspect]
     Active Substance: OSELTAMIVIR
     Indication: ANTIBIOTIC THERAPY
     Route: 065
  5. AMPICILLIN AND SULBACTAM [Suspect]
     Active Substance: AMPICILLIN SODIUM\SULBACTAM SODIUM
     Indication: ANTIBIOTIC THERAPY
     Route: 065
  6. AZATHIOPRINE. [Suspect]
     Active Substance: AZATHIOPRINE
     Indication: JUVENILE IDIOPATHIC ARTHRITIS
     Route: 048
  7. ISONIASID [Concomitant]
     Active Substance: ISONIAZID
     Indication: PROPHYLAXIS
     Route: 065

REACTIONS (7)
  - Bronchopulmonary aspergillosis [Fatal]
  - Productive cough [Fatal]
  - Hypotension [Fatal]
  - Pyrexia [Fatal]
  - Septic shock [Fatal]
  - Hypoxia [Fatal]
  - Respiratory failure [Fatal]
